FAERS Safety Report 20313329 (Version 2)
Quarter: 2022Q1

REPORT INFORMATION
  Report Type: Spontaneous
  Country: CN (occurrence: CN)
  Receive Date: 20220110
  Receipt Date: 20220111
  Transmission Date: 20220423
  Serious: Yes (Hospitalization)
  Sender: FDA-Public Use
  Company Number: CN-JNJFOC-20220109792

PATIENT
  Age: 12 Day
  Sex: Female
  Weight: 1.03 kg

DRUGS (11)
  1. CHILDRENS MOTRIN [Suspect]
     Active Substance: IBUPROFEN
     Indication: Patent ductus arteriosus repair
     Route: 045
     Dates: start: 20211219, end: 20211219
  2. CHILDRENS MOTRIN [Suspect]
     Active Substance: IBUPROFEN
     Route: 045
     Dates: start: 20211220, end: 20211221
  3. CEFTAZIDIME [Concomitant]
     Active Substance: CEFTAZIDIME
     Indication: Pneumonia
     Route: 041
     Dates: start: 20211209, end: 20211210
  4. MEROPENEM [Concomitant]
     Active Substance: MEROPENEM
     Indication: Sepsis
     Route: 041
     Dates: start: 20211210, end: 20211223
  5. AZITHROMYCIN [Concomitant]
     Active Substance: AZITHROMYCIN
     Indication: Mycoplasma infection
     Route: 041
     Dates: start: 20211216, end: 20211229
  6. PENICILLIN G SODIUM [Concomitant]
     Active Substance: PENICILLIN G SODIUM
     Indication: Neonatal pneumonia
     Dosage: DOSE : 8.800000 10,000 U
     Route: 041
     Dates: start: 20211209, end: 20211215
  7. DEXTROSE\SODIUM CHLORIDE [Concomitant]
     Active Substance: DEXTROSE\SODIUM CHLORIDE
     Indication: Product used for unknown indication
     Route: 041
     Dates: start: 20211209, end: 20211210
  8. DEXTROSE\SODIUM CHLORIDE [Concomitant]
     Active Substance: DEXTROSE\SODIUM CHLORIDE
     Route: 041
     Dates: start: 20211210, end: 20211223
  9. GLUCOSE INJECTION MP [Concomitant]
     Indication: Product used for unknown indication
     Dosage: MEDICATION - DOSES:2?MEDICATION - DAYS:1
     Route: 041
     Dates: start: 20211209, end: 20211215
  10. GLUCOSE INJECTION MP [Concomitant]
     Dosage: MEDICATION - DOSES:1?MEDICATION - DAYS:1
     Route: 041
     Dates: start: 20211216, end: 20211229
  11. GLUCOSE INJECTION MP [Concomitant]
     Route: 045
     Dates: start: 20211219, end: 20211221

REACTIONS (1)
  - Upper gastrointestinal haemorrhage [Recovered/Resolved]

NARRATIVE: CASE EVENT DATE: 20211221
